FAERS Safety Report 4849576-0 (Version None)
Quarter: 2005Q4

REPORT INFORMATION
  Report Type: 
  Country: None (occurrence: None)
  Receive Date: 20051209
  Receipt Date: 20051202
  Transmission Date: 20060501
  Serious: Yes (Hospitalization, Other)
  Sender: FDA-Public Use
  Company Number: TR-ABBOTT-05P-161-0318588-00

PATIENT
  Age: 63 Year
  Sex: Female

DRUGS (2)
  1. FENOFIBRATE [Suspect]
     Indication: DRUG USE FOR UNKNOWN INDICATION
     Route: 048
  2. HMG COA REDUCTASE INHIBITORS [Concomitant]
     Indication: DRUG USE FOR UNKNOWN INDICATION

REACTIONS (7)
  - AUTOIMMUNE DISORDER [None]
  - FATIGUE [None]
  - HYPOTHYROIDISM [None]
  - MYALGIA [None]
  - RENAL FAILURE ACUTE [None]
  - RHABDOMYOLYSIS [None]
  - THYROIDITIS [None]
